FAERS Safety Report 11055429 (Version 2)
Quarter: 2015Q2

REPORT INFORMATION
  Report Type: Spontaneous
  Country: US (occurrence: US)
  Receive Date: 20150422
  Receipt Date: 20150520
  Transmission Date: 20150821
  Serious: Yes (Other)
  Sender: FDA-Public Use
  Company Number: US-BAYER-2015-129661

PATIENT
  Age: 48 Year
  Sex: Female
  Weight: 79.4 kg

DRUGS (5)
  1. ADEMPAS [Suspect]
     Active Substance: RIOCIGUAT
     Indication: PULMONARY HYPERTENSION
     Dosage: 1 MG, TID
     Route: 048
  2. REMODULIN [Suspect]
     Active Substance: TREPROSTINIL
     Indication: SECONDARY HYPERTENSION
     Dosage: 0.089 ?G/KG, UNK
     Route: 042
  3. LETAIRIS [Concomitant]
     Active Substance: AMBRISENTAN
  4. REMODULIN [Suspect]
     Active Substance: TREPROSTINIL
     Indication: SECONDARY HYPERTENSION
     Dosage: 0.089 ?G/KG, UNK
     Route: 042
     Dates: start: 20050313
  5. COUMADIN [Concomitant]
     Active Substance: WARFARIN SODIUM

REACTIONS (19)
  - Cardiac failure congestive [None]
  - Flatulence [None]
  - Headache [None]
  - Dyspnoea [None]
  - Medical device change [Recovered/Resolved]
  - Diplopia [None]
  - Abdominal distension [None]
  - Diarrhoea [None]
  - Hypotension [None]
  - Pain in jaw [None]
  - Feeling abnormal [None]
  - Myalgia intercostal [None]
  - Fluid retention [None]
  - Gastrooesophageal reflux disease [None]
  - Dehydration [None]
  - Nausea [None]
  - Dizziness [None]
  - Chest pain [None]
  - Dyspepsia [Recovered/Resolved]

NARRATIVE: CASE EVENT DATE: 2015
